FAERS Safety Report 9334986 (Version 1)
Quarter: 2013Q2

REPORT INFORMATION
  Report Type: Spontaneous
  Country: US (occurrence: US)
  Receive Date: 20130606
  Receipt Date: 20130606
  Transmission Date: 20140414
  Serious: No
  Sender: FDA-Public Use
  Company Number: US-AMGEN-USASP2013036337

PATIENT
  Age: 74 Year
  Sex: Female

DRUGS (3)
  1. PROLIA [Suspect]
     Indication: OSTEOPOROSIS POSTMENOPAUSAL
     Dosage: 60 MG, Q6MO
     Dates: start: 201303
  2. LISINOPRIL [Concomitant]
  3. LIPITOR [Concomitant]
     Dosage: UNK
     Dates: start: 201303

REACTIONS (3)
  - Joint swelling [Unknown]
  - Activities of daily living impaired [Unknown]
  - Pain in extremity [Unknown]
